FAERS Safety Report 20729874 (Version 1)
Quarter: 2022Q2

REPORT INFORMATION
  Report Type: Spontaneous
  Country: US (occurrence: None)
  Receive Date: 20220419
  Receipt Date: 20220419
  Transmission Date: 20220721
  Serious: Yes (Hospitalization)
  Sender: FDA-Public Use
  Company Number: None

PATIENT
  Age: 58 Year
  Sex: Male

DRUGS (14)
  1. BEBTELOVIMAB [Suspect]
     Active Substance: BEBTELOVIMAB
     Indication: COVID-19
     Dosage: OTHER FREQUENCY : ONCE;?
     Route: 042
     Dates: start: 20220414, end: 20220414
  2. albuterol HFA 90 mcg/actuation inhaler [Concomitant]
  3. allopurinoL (ZYLOPRIM) 300 mg tablet [Concomitant]
  4. aspirin 81 mg tablet [Concomitant]
  5. ATENolol (TENORMIN) 50 mg tablet [Concomitant]
  6. atorvastatin (LIPITOR) 80 mg tablet [Concomitant]
  7. (Symbicort) 160-4.5 mcg/actuation inhaler [Concomitant]
  8. gabapentin (Neurontin) 300 mg capsule [Concomitant]
  9. insulin aspart U-100, 100 unit/mL (3 mL) Flexpen [Concomitant]
  10. Jardiance 25 mg tablet tablet [Concomitant]
  11. Levemir U-100 Flextouch 100 unit/mL (3 mL) FlexPen [Concomitant]
  12. lisinopriL (ZestRIL) 30 mg tablet [Concomitant]
  13. rOPINIRole (REQUIP) 0.25 mg tablet [Concomitant]
  14. ustekinumab (STELARA) injection [Concomitant]

REACTIONS (7)
  - Chills [None]
  - Chills [None]
  - Vomiting [None]
  - Feeling hot [None]
  - Oropharyngeal pain [None]
  - Dyspnoea [None]
  - Acute respiratory failure [None]

NARRATIVE: CASE EVENT DATE: 20220414
